FAERS Safety Report 7108739-4 (Version None)
Quarter: 2010Q4

REPORT INFORMATION
  Report Type: 
  Country: None (occurrence: None)
  Receive Date: 20101115
  Receipt Date: 20101115
  Transmission Date: 20110411
  Serious: Yes (Life-Threatening)
  Sender: FDA-Public Use
  Company Number: None

PATIENT
  Age: 10 Year
  Sex: Male
  Weight: 27.2158 kg

DRUGS (1)
  1. ADDERALL XR 25 [Suspect]
     Indication: ATTENTION DEFICIT/HYPERACTIVITY DISORDER
     Dosage: 1 XDAILY PO
     Route: 048
     Dates: start: 20020902, end: 20040830

REACTIONS (2)
  - CARDIAC MURMUR [None]
  - TACHYCARDIA [None]
